FAERS Safety Report 4641681-7 (Version None)
Quarter: 2005Q2

REPORT INFORMATION
  Report Type: 
  Country: None (occurrence: None)
  Receive Date: 20050420
  Receipt Date: 20050404
  Transmission Date: 20051028
  Serious: Yes (Death)
  Sender: FDA-Public Use
  Company Number: B0376758A

PATIENT
  Sex: Female

DRUGS (2)
  1. VINORELBINE TARTRATE [Suspect]
     Indication: BREAST CANCER METASTATIC
     Dosage: 30 MG/M2 CYCLIC
  2. TRASTUZUMAB (FORMULATION UNKNOWN) (TRASTUZUMAB) [Suspect]
     Indication: BREAST CANCER METASTATIC
     Dosage: CYCLIC

REACTIONS (1)
  - RENAL FAILURE [None]
